FAERS Safety Report 9350602 (Version 2)
Quarter: 2013Q2

REPORT INFORMATION
  Report Type: Report from Study
  Country: FR (occurrence: FR)
  Receive Date: 20130617
  Receipt Date: 20130621
  Transmission Date: 20140414
  Serious: Yes (Death)
  Sender: FDA-Public Use
  Company Number: FR-JNJFOC-20130513539

PATIENT
  Sex: Male
  Weight: 83 kg

DRUGS (3)
  1. XARELTO [Suspect]
     Indication: THROMBOSIS PROPHYLAXIS
     Route: 048
     Dates: start: 20130315
  2. XARELTO [Suspect]
     Indication: CEREBROVASCULAR ACCIDENT PROPHYLAXIS
     Route: 048
     Dates: start: 20130315
  3. PREVISCAN (FLUINDIONE) [Concomitant]
     Route: 065
     Dates: start: 2012, end: 20130312

REACTIONS (2)
  - Pulmonary alveolar haemorrhage [Fatal]
  - Multi-organ failure [Fatal]
